FAERS Safety Report 24262602 (Version 1)
Quarter: 2024Q3

REPORT INFORMATION
  Report Type: Spontaneous
  Country: CN (occurrence: CN)
  Receive Date: 20240829
  Receipt Date: 20240829
  Transmission Date: 20241016
  Serious: Yes (Hospitalization, Other)
  Sender: BAXTER
  Company Number: None

PATIENT
  Age: 16 Year
  Sex: Female
  Weight: 16 kg

DRUGS (4)
  1. CYCLOPHOSPHAMIDE [Suspect]
     Active Substance: CYCLOPHOSPHAMIDE
     Indication: Chemotherapy
     Dosage: 1.7 G, ONE TIME IN ONE DAY
     Route: 041
     Dates: start: 20240702, end: 20240702
  2. MESNA [Suspect]
     Active Substance: MESNA
     Indication: Cystitis haemorrhagic
     Dosage: UNK
     Route: 065
     Dates: start: 20240702
  3. VINCRISTINE SULFATE [Suspect]
     Active Substance: VINCRISTINE SULFATE
     Indication: Chemotherapy
     Dosage: 2 MG, ONE TIME IN ONE DAY
     Route: 041
     Dates: start: 20240702, end: 20240702
  4. DOXORUBICIN [Suspect]
     Active Substance: DOXORUBICIN
     Indication: Chemotherapy
     Dosage: UNK
     Route: 065
     Dates: start: 20240702

REACTIONS (1)
  - Myelosuppression [Recovering/Resolving]

NARRATIVE: CASE EVENT DATE: 20240715
